FAERS Safety Report 5811603-1 (Version None)
Quarter: 2008Q3

REPORT INFORMATION
  Report Type: 
  Country: None (occurrence: None)
  Receive Date: 20080716
  Receipt Date: 20080714
  Transmission Date: 20090109
  Serious: Yes (Life-Threatening)
  Sender: FDA-Public Use
  Company Number: JP-ASTRAZENECA-2008AP05347

PATIENT
  Age: 55 Year
  Sex: Male
  Weight: 67 kg

DRUGS (10)
  1. DIPRIVAN [Suspect]
     Indication: SEDATION
     Dosage: 3 ML/HOUR AND THEN INCREASED TO 7 ML/HOUR
     Route: 042
     Dates: start: 20080618, end: 20080619
  2. LIVALO [Concomitant]
     Indication: HYPERCHOLESTEROLAEMIA
     Route: 048
  3. ASPIRIN [Concomitant]
     Dosage: 2 TABLETS IN THE MORNING AND THE EVENING
     Route: 048
  4. PLAVIX [Concomitant]
     Dosage: ONE TABLET IN THE MORNING
     Route: 048
  5. PREDOPA [Concomitant]
     Dosage: 2 TO 4 ML/HOUR
     Route: 041
  6. HEPARIN [Concomitant]
     Route: 041
  7. MIDAZOLAM HCL [Concomitant]
     Route: 041
  8. SHINBIT [Concomitant]
     Dosage: 1 MG/HOUR TO 12 ML/HOUR
     Route: 041
  9. LASIX [Concomitant]
     Route: 041
  10. UNASYN [Concomitant]
     Route: 041

REACTIONS (1)
  - HYPERTHERMIA MALIGNANT [None]
